FAERS Safety Report 12282831 (Version 1)
Quarter: 2016Q2

REPORT INFORMATION
  Report Type: Report from Study
  Country: US (occurrence: US)
  Receive Date: 20160419
  Receipt Date: 20160419
  Transmission Date: 20160815
  Serious: No
  Sender: FDA-Public Use
  Company Number: US-AMGEN-USASL2016022694

PATIENT
  Age: 68 Year
  Sex: Female

DRUGS (1)
  1. CORLANOR [Suspect]
     Active Substance: IVABRADINE HYDROCHLORIDE
     Indication: CARDIOMYOPATHY
     Dosage: 5 MG, BID
     Route: 065
     Dates: start: 20160111

REACTIONS (2)
  - Off label use [Unknown]
  - Emphysema [Not Recovered/Not Resolved]
